FAERS Safety Report 8657627 (Version 2)
Quarter: 2013Q1

REPORT INFORMATION
  Report Type: Spontaneous
  Country: TR (occurrence: None)
  Receive Date: 20120625
  Receipt Date: 20130222
  Transmission Date: 20140127
  Serious: Yes (Other)
  Sender: FDA-Public Use
  Company Number: TR-1192758

PATIENT
  Age: 59 Year
  Sex: Male

DRUGS (2)
  1. MIOSTAT [Suspect]
     Dosage: TO NOT CONTINUING?
     Route: 047
  2. BSS [Suspect]
     Dosage: INTRAOCULAR TO NOT CONTINUING?
     Route: 031

REACTIONS (12)
  - CORNEAL OPACITY [None]
  - FLAT ANTERIOR CHAMBER OF EYE [None]
  - ANTERIOR CHAMBER FIBRIN [None]
  - ANTERIOR CHAMBER PIGMENTATION [None]
  - IRIS HAEMORRHAGE [None]
  - IRIS ADHESIONS [None]
  - CORNEAL OEDEMA [None]
  - CONJUNCTIVAL BLEB [None]
  - INTRAOCULAR PRESSURE INCREASED [None]
  - CONJUNCTIVAL OEDEMA [None]
  - OCULAR HYPERAEMIA [None]
  - TYPE I HYPERSENSITIVITY [None]
